FAERS Safety Report 23277167 (Version 1)
Quarter: 2023Q4

REPORT INFORMATION
  Report Type: Spontaneous
  Country: BR (occurrence: BR)
  Receive Date: 20231208
  Receipt Date: 20231208
  Transmission Date: 20240110
  Serious: Yes (Other)
  Sender: FDA-Public Use
  Company Number: BR-ALCON LABORATORIES-ALC2023BR005533

PATIENT
  Age: 66 Year
  Sex: Female

DRUGS (1)
  1. MYDRIACYL [Suspect]
     Active Substance: TROPICAMIDE
     Indication: Mydriasis
     Dosage: 10 MILLIGRAM PER MILLILITRE
     Route: 065

REACTIONS (2)
  - Visual impairment [Not Recovered/Not Resolved]
  - Vision blurred [Not Recovered/Not Resolved]
